FAERS Safety Report 7177302-1 (Version None)
Quarter: 2010Q4

REPORT INFORMATION
  Report Type: 
  Country: None (occurrence: None)
  Receive Date: 20101220
  Receipt Date: 20101207
  Transmission Date: 20110411
  Serious: Yes (Other)
  Sender: FDA-Public Use
  Company Number: US-ELI_LILLY_AND_COMPANY-US201009006735

PATIENT
  Sex: Female

DRUGS (15)
  1. FORTEO [Suspect]
     Indication: OSTEOPOROSIS
     Dosage: 20 UG, DAILY (1/D)
     Dates: start: 20100919
  2. FORTEO [Suspect]
  3. NORVASC [Concomitant]
  4. PLAQUENIL [Concomitant]
  5. SYNTHROID [Concomitant]
  6. OXYCODONE HCL [Concomitant]
  7. AVALIDE [Concomitant]
  8. LYRICA [Concomitant]
  9. PRILOSEC [Concomitant]
  10. AMBIEN [Concomitant]
  11. PREDNISONE [Concomitant]
  12. VITAMIN D [Concomitant]
  13. CALCIUM [Concomitant]
  14. ZOCOR [Concomitant]
  15. ULTRAM [Concomitant]

REACTIONS (4)
  - FALL [None]
  - JOINT DISLOCATION [None]
  - NAUSEA [None]
  - PAIN [None]
